FAERS Safety Report 7543591-4 (Version None)
Quarter: 2011Q2

REPORT INFORMATION
  Report Type: 
  Country: None (occurrence: None)
  Receive Date: 20110613
  Receipt Date: 20021104
  Transmission Date: 20111010
  Serious: Yes (Hospitalization)
  Sender: FDA-Public Use
  Company Number: PHNR2002AU00443

PATIENT
  Sex: Male

DRUGS (2)
  1. CLOZAPINE [Suspect]
     Indication: SCHIZOPHRENIA
     Dosage: 300 OR 500MG/DAY
     Route: 048
     Dates: start: 19980404, end: 20021029
  2. CLOZAPINE [Suspect]
     Dates: start: 20021102

REACTIONS (2)
  - CIRCULATORY COLLAPSE [None]
  - HYPONATRAEMIA [None]
